FAERS Safety Report 9362944 (Version 2)
Quarter: 2013Q3

REPORT INFORMATION
  Report Type: Spontaneous
  Country: JP (occurrence: JP)
  Receive Date: 20130624
  Receipt Date: 20130804
  Transmission Date: 20140515
  Serious: Yes (Death)
  Sender: FDA-Public Use
  Company Number: JP-ROCHE-1239312

PATIENT
  Sex: Female

DRUGS (9)
  1. PEGASYS [Suspect]
     Indication: HEPATIC CIRRHOSIS
     Route: 058
     Dates: start: 20120130, end: 20120827
  2. PEGASYS [Suspect]
     Indication: HEPATIC CIRRHOSIS
     Route: 058
     Dates: start: 20130105, end: 20130119
  3. COPEGUS [Suspect]
     Indication: HEPATIC CIRRHOSIS
     Route: 048
     Dates: start: 20130105, end: 20130119
  4. GASMOTIN [Concomitant]
     Route: 048
     Dates: start: 20100217, end: 20130119
  5. RANITAC [Concomitant]
     Route: 048
     Dates: start: 20100217, end: 20130119
  6. SPIRONOLACTONE [Concomitant]
     Route: 048
     Dates: start: 20070821, end: 20130119
  7. TALION (JAPAN) [Concomitant]
     Route: 048
     Dates: start: 20101202, end: 20130119
  8. AMLODIPINE [Concomitant]
     Route: 048
     Dates: start: 20110819, end: 20130119
  9. ENALAPRIL MALEATE [Concomitant]
     Dosage: DRUG REPORTED AS : RENIVEZE
     Route: 048
     Dates: start: 20080126, end: 20130119

REACTIONS (1)
  - Cerebral haemorrhage [Fatal]
